FAERS Safety Report 8827112 (Version 1)
Quarter: 2012Q4

REPORT INFORMATION
  Report Type: 
  Country: IT (occurrence: IT)
  Receive Date: 20121006
  Receipt Date: 20121006
  Transmission Date: 20130627
  Serious: Yes (Death, Other)
  Sender: FDA-Public Use
  Company Number: IT-ACCORD-014800

PATIENT
  Age: 57 Year
  Sex: Female

DRUGS (3)
  1. ETOPOSIDE [Suspect]
     Indication: ACUTE MYELOBLASTIC LEUKEMIA
     Dosage: continuous infusion for 7 days
  2. DAUNORUBICIN [Suspect]
     Indication: ACUTE MYELOBLASTIC LEUKEMIA
     Dosage: standard dose continuous infusion for 7 days
  3. CYTARABINE [Suspect]
     Indication: ACUTE MYELOBLASTIC LEUKEMIA
     Dosage: continuous infusion for 7 days

REACTIONS (7)
  - Encephalopathy [Fatal]
  - Septic shock [Unknown]
  - Systemic inflammatory response syndrome [Unknown]
  - Multi-organ failure [Unknown]
  - Off label use [Unknown]
  - Pancytopenia [Unknown]
  - Escherichia infection [Unknown]
